FAERS Safety Report 24653262 (Version 3)
Quarter: 2025Q3

REPORT INFORMATION
  Report Type: Spontaneous
  Country: CA (occurrence: CA)
  Receive Date: 20241122
  Receipt Date: 20250701
  Transmission Date: 20251020
  Serious: Yes (Other)
  Sender: PFIZER
  Company Number: CA-PFIZER INC-202400007840

PATIENT
  Age: 62 Year
  Sex: Female

DRUGS (4)
  1. RUXIENCE [Suspect]
     Active Substance: RITUXIMAB-PVVR
     Indication: Granulomatosis with polyangiitis
     Route: 042
     Dates: start: 20240118, end: 20240118
  2. RUXIENCE [Suspect]
     Active Substance: RITUXIMAB-PVVR
     Indication: Microscopic polyangiitis
     Route: 042
     Dates: start: 20240718, end: 20240718
  3. RUXIENCE [Suspect]
     Active Substance: RITUXIMAB-PVVR
     Route: 042
     Dates: start: 20250121, end: 20250121
  4. PREDNISONE [Concomitant]
     Active Substance: PREDNISONE
     Dates: end: 20241117

REACTIONS (3)
  - Oesophageal neoplasm [Unknown]
  - Drug ineffective [Unknown]
  - Off label use [Unknown]
